FAERS Safety Report 9778986 (Version 1)
Quarter: 2013Q4

REPORT INFORMATION
  Report Type: Spontaneous
  Country: AT (occurrence: AT)
  Receive Date: 20131223
  Receipt Date: 20131223
  Transmission Date: 20140711
  Serious: Yes (Life-Threatening)
  Sender: FDA-Public Use
  Company Number: AT-BAYER-2013-154474

PATIENT
  Age: 44 Year
  Sex: Male

DRUGS (2)
  1. ULTRAVIST [Suspect]
     Indication: COMPUTERISED TOMOGRAM
     Dosage: 100 ML, ONCE
     Dates: start: 20131115, end: 20131115
  2. ULTRAVIST 370 MG J/ML INFUSIONSFLASCHEN [Suspect]
     Indication: NEOPLASM

REACTIONS (5)
  - Cough [Recovered/Resolved]
  - Intensive care [Recovered/Resolved]
  - Lividity [Recovered/Resolved]
  - Respiratory distress [Recovered/Resolved]
  - Cardiac discomfort [Recovered/Resolved]
